FAERS Safety Report 9828920 (Version 4)
Quarter: 2015Q4

REPORT INFORMATION
  Report Type: Report from Study
  Country: NZ (occurrence: NZ)
  Receive Date: 20140118
  Receipt Date: 20151007
  Transmission Date: 20160305
  Serious: Yes (Hospitalization)
  Sender: FDA-Public Use
  Company Number: NZ-ABBVIE-14P-118-1189345-00

PATIENT
  Age: 48 Year
  Sex: Female
  Weight: 46 kg

DRUGS (1)
  1. HUMIRA [Suspect]
     Active Substance: ADALIMUMAB
     Indication: CROHN^S DISEASE
     Route: 058
     Dates: start: 20131125

REACTIONS (3)
  - Pain [Recovering/Resolving]
  - Gastrointestinal inflammation [Recovered/Resolved]
  - Abdominal pain [Recovered/Resolved]

NARRATIVE: CASE EVENT DATE: 20140129
